FAERS Safety Report 7416853-9 (Version None)
Quarter: 2011Q2

REPORT INFORMATION
  Report Type: 
  Country: None (occurrence: None)
  Receive Date: 20110415
  Receipt Date: 20110401
  Transmission Date: 20111010
  Serious: Yes (Other)
  Sender: FDA-Public Use
  Company Number: CA-JNJFOC-20100605775

PATIENT
  Sex: Female
  Weight: 72 kg

DRUGS (4)
  1. PREDNISONE [Concomitant]
  2. FOLIC ACID [Concomitant]
  3. REMICADE [Suspect]
     Indication: RHEUMATOID ARTHRITIS
     Dosage: LOADING DOSE
     Route: 042
  4. METHOTREXATE [Concomitant]

REACTIONS (2)
  - FALL [None]
  - DIZZINESS [None]
